FAERS Safety Report 18058142 (Version 2)
Quarter: 2020Q3

REPORT INFORMATION
  Report Type: Spontaneous
  Country: FR (occurrence: FR)
  Receive Date: 20200723
  Receipt Date: 20200908
  Transmission Date: 20201103
  Serious: Yes (Other)
  Sender: FDA-Public Use
  Company Number: FR-AKCEA THERAPEUTICS-2020IS001297

PATIENT
  Age: 68 Year
  Sex: Male
  Weight: 76.18 kg

DRUGS (5)
  1. UROREC [Concomitant]
     Active Substance: SILODOSIN
  2. ISSD (INTEGRATED SYRINGE SAFETY DEVICE) [Suspect]
     Active Substance: DEVICE
  3. TEGSEDI [Suspect]
     Active Substance: INOTERSEN SODIUM
     Indication: AMYLOIDOSIS SENILE
     Route: 058
     Dates: start: 201902
  4. NEURONTIN [Concomitant]
     Active Substance: GABAPENTIN
  5. VITAMIN A /00056001/ [Concomitant]
     Active Substance: RETINOL

REACTIONS (6)
  - Chest discomfort [Recovered/Resolved]
  - Hypotension [Recovered/Resolved]
  - Rash [Recovered/Resolved]
  - Fatigue [Recovered/Resolved]
  - Anaphylactoid reaction [Recovered/Resolved]
  - Nausea [Recovered/Resolved]

NARRATIVE: CASE EVENT DATE: 20200326
